FAERS Safety Report 6176928-1 (Version None)
Quarter: 2009Q2

REPORT INFORMATION
  Report Type: 
  Country: None (occurrence: None)
  Receive Date: 20090501
  Receipt Date: 20090107
  Transmission Date: 20091009
  Serious: Yes (Other)
  Sender: FDA-Public Use
  Company Number: US-ALEXION-A200900018

PATIENT

DRUGS (2)
  1. SOLIRIS [Suspect]
     Dosage: Q2W
  2. SOLIRIS [Suspect]
     Dosage: Q16D

REACTIONS (1)
  - HAEMOLYSIS [None]
